FAERS Safety Report 8547750-3 (Version None)
Quarter: 2012Q3

REPORT INFORMATION
  Report Type: 
  Country: None (occurrence: None)
  Receive Date: 20120727
  Receipt Date: 20120105
  Transmission Date: 20120928
  Serious: Yes (Other)
  Sender: FDA-Public Use
  Company Number: US-ASTRAZENECA-2011SE74058

PATIENT
  Age: 69 Year
  Sex: Female

DRUGS (3)
  1. SEROQUEL [Suspect]
     Indication: DEPRESSION
     Route: 048
  2. KLONOPIN [Concomitant]
  3. SEROQUEL [Suspect]
     Route: 048

REACTIONS (5)
  - CONVULSION [None]
  - DEPRESSION [None]
  - DRUG DEPENDENCE [None]
  - DEPRESSED MOOD [None]
  - DRUG INEFFECTIVE [None]
